FAERS Safety Report 14645970 (Version 9)
Quarter: 2019Q1

REPORT INFORMATION
  Report Type: Report from Study
  Country: CA (occurrence: CA)
  Receive Date: 20180316
  Receipt Date: 20190120
  Transmission Date: 20190417
  Serious: Yes (Hospitalization, Other)
  Sender: FDA-Public Use
  Company Number: CA-BRISTOL-MYERS SQUIBB COMPANY-BMS-2017-038565

PATIENT
  Age: 85 Year
  Sex: Female

DRUGS (2)
  1. ABATACEPT [Suspect]
     Active Substance: ABATACEPT
     Indication: PRODUCT USED FOR UNKNOWN INDICATION
     Dosage: 500 MG, QMO
     Route: 042
     Dates: start: 20090806
  2. ABATACEPT [Suspect]
     Active Substance: ABATACEPT
     Indication: RHEUMATOID ARTHRITIS
     Dosage: 750 MG, Q4WK
     Route: 042
     Dates: start: 20090806

REACTIONS (12)
  - Pneumonia [Recovered/Resolved]
  - Rhinorrhoea [Unknown]
  - Fall [Unknown]
  - Ligament sprain [Unknown]
  - Arrhythmia [Unknown]
  - Upper limb fracture [Unknown]
  - Intestinal perforation [Recovering/Resolving]
  - Bronchitis [Unknown]
  - Bradycardia [Unknown]
  - Pulmonary oedema [Recovering/Resolving]
  - Productive cough [Not Recovered/Not Resolved]
  - Urinary tract infection [Recovering/Resolving]

NARRATIVE: CASE EVENT DATE: 20170422
